FAERS Safety Report 25681592 (Version 1)
Quarter: 2025Q3

REPORT INFORMATION
  Report Type: Spontaneous
  Country: GB (occurrence: GB)
  Receive Date: 20250814
  Receipt Date: 20250814
  Transmission Date: 20251021
  Serious: Yes (Other)
  Sender: RANBAXY
  Company Number: GB-SUN PHARMACEUTICAL INDUSTRIES LTD-2025RR-522712

PATIENT
  Age: 75 Year
  Sex: Female
  Weight: 88 kg

DRUGS (25)
  1. SERTRALINE [Suspect]
     Active Substance: SERTRALINE HYDROCHLORIDE
     Indication: Anxiety
     Dosage: TAKE ONE TABLET DAILY FOR ANXIETY/DEPRESSION
     Route: 048
     Dates: start: 20250721, end: 20250729
  2. SERTRALINE [Suspect]
     Active Substance: SERTRALINE HYDROCHLORIDE
     Indication: Depression
  3. CARBOCYSTEINE [Concomitant]
     Active Substance: CARBOCYSTEINE
     Indication: Product used for unknown indication
     Route: 065
     Dates: start: 20250508, end: 20250605
  4. PROCHLORPERAZINE [Concomitant]
     Active Substance: PROCHLORPERAZINE
     Indication: Product used for unknown indication
     Route: 065
     Dates: start: 20250717, end: 20250718
  5. DOXYCYCLINE [Concomitant]
     Active Substance: DOXYCYCLINE
     Indication: Product used for unknown indication
     Route: 065
     Dates: start: 20250529, end: 20250605
  6. CEPHALEXIN [Concomitant]
     Active Substance: CEPHALEXIN
     Indication: Infection
     Dosage: TAKE ONE 3 TIMES/DAY  FOR INFECTION
     Route: 065
     Dates: start: 20250725
  7. ALLEVYN GENTLE BORDER [Concomitant]
     Indication: Ill-defined disorder
     Route: 065
     Dates: start: 20250729
  8. DERMOL [Concomitant]
     Active Substance: BENZALKONIUM CHLORIDE\CHLORHEXIDINE HYDROCHLORIDE\ISOPROPYL MYRISTATE\PARAFFIN
     Indication: Product used for unknown indication
     Route: 065
     Dates: start: 20250729
  9. NITROGLYCERIN [Concomitant]
     Active Substance: NITROGLYCERIN
     Indication: Product used for unknown indication
     Route: 065
     Dates: start: 20250303
  10. GLUCORX [Concomitant]
     Indication: Ill-defined disorder
     Route: 065
     Dates: start: 20250303
  11. GLUCORX HCT KETONE [Concomitant]
     Indication: Ill-defined disorder
     Route: 065
     Dates: start: 20250303
  12. SHARPSGUARD [Concomitant]
     Indication: Ill-defined disorder
     Route: 065
     Dates: start: 20250303
  13. PANTOPRAZOLE [Concomitant]
     Active Substance: PANTOPRAZOLE
     Indication: Product used for unknown indication
     Route: 065
     Dates: start: 20250303
  14. LISINOPRIL [Concomitant]
     Active Substance: LISINOPRIL
     Indication: Product used for unknown indication
     Dosage: ONE EVERY DAY
     Route: 065
     Dates: start: 20250303
  15. BRICANYL [Concomitant]
     Active Substance: TERBUTALINE SULFATE
     Indication: Ill-defined disorder
     Route: 065
     Dates: start: 20250303
  16. ATORVASTATIN [Concomitant]
     Active Substance: ATORVASTATIN
     Indication: Ill-defined disorder
     Route: 065
     Dates: start: 20250303
  17. BECLOMETHASONE\FORMOTEROL [Concomitant]
     Active Substance: BECLOMETHASONE\FORMOTEROL
     Indication: Ill-defined disorder
     Route: 065
     Dates: start: 20250303
  18. ACTRAPID [Concomitant]
     Active Substance: INSULIN HUMAN
     Indication: Ill-defined disorder
     Route: 065
     Dates: start: 20250303
  19. ASPIRIN [Concomitant]
     Active Substance: ASPIRIN
     Indication: Ill-defined disorder
     Route: 065
     Dates: start: 20250303
  20. BD MICRO-FINE PLUS [Concomitant]
     Indication: Ill-defined disorder
     Route: 065
     Dates: start: 20250303
  21. FUROSEMIDE [Concomitant]
     Active Substance: FUROSEMIDE
     Indication: Ill-defined disorder
     Route: 065
     Dates: start: 20250303
  22. GLUCORX NEXUS [Concomitant]
     Indication: Ill-defined disorder
     Route: 065
     Dates: start: 20250303
  23. IBUPROFEN [Concomitant]
     Active Substance: IBUPROFEN
     Indication: Ill-defined disorder
     Route: 065
     Dates: start: 20250303
  24. LANTUS [Concomitant]
     Active Substance: INSULIN GLARGINE
     Indication: Ill-defined disorder
     Route: 065
     Dates: start: 20250303
  25. ACETAMINOPHEN [Concomitant]
     Active Substance: ACETAMINOPHEN
     Indication: Ill-defined disorder
     Route: 065
     Dates: start: 20250303

REACTIONS (4)
  - Blood glucose increased [Unknown]
  - Restless legs syndrome [Recovered/Resolved]
  - Nausea [Recovered/Resolved]
  - Diarrhoea [Recovered/Resolved]

NARRATIVE: CASE EVENT DATE: 20250725
